FAERS Safety Report 7509322-9 (Version None)
Quarter: 2011Q2

REPORT INFORMATION
  Report Type: 
  Country: None (occurrence: None)
  Receive Date: 20110527
  Receipt Date: 20110517
  Transmission Date: 20111010
  Serious: Yes (Hospitalization, Other)
  Sender: FDA-Public Use
  Company Number: PHHY2011MX43701

PATIENT

DRUGS (1)
  1. CARBAMAZEPINE [Suspect]
     Indication: FABRY'S DISEASE

REACTIONS (2)
  - PARAESTHESIA [None]
  - KIDNEY FIBROSIS [None]
